FAERS Safety Report 15487064 (Version 2)
Quarter: 2018Q4

REPORT INFORMATION
  Report Type: Spontaneous
  Country: US (occurrence: US)
  Receive Date: 20181011
  Receipt Date: 20181022
  Transmission Date: 20190205
  Serious: Yes (Death, Hospitalization)
  Sender: FDA-Public Use
  Company Number: US-JNJFOC-20180937867

PATIENT
  Age: 89 Year
  Sex: Female

DRUGS (1)
  1. XARELTO [Suspect]
     Active Substance: RIVAROXABAN
     Indication: DEEP VEIN THROMBOSIS
     Dosage: 15 MG FOR 21 DAYS AND THEN 20 MG DAILY
     Route: 048
     Dates: start: 20150212, end: 20150910

REACTIONS (1)
  - Gastric ulcer haemorrhage [Fatal]

NARRATIVE: CASE EVENT DATE: 201508
